FAERS Safety Report 13159969 (Version 2)
Quarter: 2017Q1

REPORT INFORMATION
  Report Type: Spontaneous
  Country: US (occurrence: US)
  Receive Date: 20170127
  Receipt Date: 20170316
  Transmission Date: 20170428
  Serious: No
  Sender: FDA-Public Use
  Company Number: US-BRISTOL-MYERS SQUIBB COMPANY-BMS-2017-005335

PATIENT
  Age: 56 Year
  Sex: Male

DRUGS (1)
  1. SPRYCEL [Suspect]
     Active Substance: DASATINIB
     Indication: LYMPHOCYTOSIS
     Dosage: 100 MG, UNK
     Route: 048
     Dates: start: 20160723

REACTIONS (2)
  - Skin hypopigmentation [Unknown]
  - Product use issue [Unknown]

NARRATIVE: CASE EVENT DATE: 20160801
